FAERS Safety Report 15928920 (Version 1)
Quarter: 2019Q1

REPORT INFORMATION
  Report Type: Report from Study
  Country: US (occurrence: US)
  Receive Date: 20190206
  Receipt Date: 20190206
  Transmission Date: 20190417
  Serious: Yes (Other)
  Sender: FDA-Public Use
  Company Number: PHEH2019US004662

PATIENT
  Sex: Female

DRUGS (1)
  1. NEORAL [Suspect]
     Active Substance: CYCLOSPORINE
     Indication: TRANSPLANT
     Dosage: UNK
     Route: 048

REACTIONS (5)
  - Escherichia infection [Unknown]
  - Kidney transplant rejection [Unknown]
  - Shock [Unknown]
  - Renal disorder [Unknown]
  - Sepsis [Unknown]
